FAERS Safety Report 5322252-6 (Version None)
Quarter: 2007Q2

REPORT INFORMATION
  Report Type: 
  Country: None (occurrence: None)
  Receive Date: 20070511
  Receipt Date: 20070503
  Transmission Date: 20071010
  Serious: Yes (Other)
  Sender: FDA-Public Use
  Company Number: US-JNJFOC-20070501112

PATIENT
  Age: 7 Decade
  Sex: Female

DRUGS (4)
  1. REMICADE [Suspect]
     Indication: PSORIATIC ARTHROPATHY
     Route: 042
  2. REMICADE [Suspect]
     Indication: CROHN'S DISEASE
     Route: 042
  3. CLARITIN [Concomitant]
     Indication: PREMEDICATION
  4. TYLENOL [Concomitant]
     Indication: PREMEDICATION

REACTIONS (3)
  - CARDIAC DISORDER [None]
  - HYPOTENSION [None]
  - INFUSION RELATED REACTION [None]
